FAERS Safety Report 9481061 (Version 2)
Quarter: 2013Q3

REPORT INFORMATION
  Report Type: Spontaneous
  Country: US (occurrence: US)
  Receive Date: 20130828
  Receipt Date: 20130828
  Transmission Date: 20140515
  Serious: Yes (Hospitalization)
  Sender: FDA-Public Use
  Company Number: US-AMGEN-KDL150156

PATIENT
  Age: 61 Year
  Sex: Female

DRUGS (2)
  1. ENBREL [Suspect]
     Indication: RHEUMATOID ARTHRITIS
     Dosage: UNK UNK, UNK
     Route: 058
     Dates: start: 20050811
  2. MINOCYCLINE [Concomitant]
     Dosage: UNK UNK, UNK
     Dates: start: 2005

REACTIONS (3)
  - Fall [Unknown]
  - Influenza [Unknown]
  - Injection site reaction [Recovering/Resolving]
